FAERS Safety Report 5826161-5 (Version None)
Quarter: 2008Q3

REPORT INFORMATION
  Report Type: 
  Country: None (occurrence: None)
  Receive Date: 20080723
  Receipt Date: 20080717
  Transmission Date: 20090109
  Serious: Yes (Other)
  Sender: FDA-Public Use
  Company Number: MSTR-NO-0807S-0040

PATIENT
  Age: 59 Year
  Sex: Male
  Weight: 51 kg

DRUGS (1)
  1. METASTRON [Suspect]
     Indication: METASTATIC PAIN
     Dosage: 102 MBQ
     Dates: start: 20080527, end: 20080527

REACTIONS (1)
  - HAEMOGLOBIN DECREASED [None]
